FAERS Safety Report 6920927-6 (Version None)
Quarter: 2010Q3

REPORT INFORMATION
  Report Type: 
  Country: None (occurrence: None)
  Receive Date: 20100812
  Receipt Date: 20100810
  Transmission Date: 20110219
  Serious: Yes (Hospitalization)
  Sender: FDA-Public Use
  Company Number: JP-EISAI INC.-E2090-01272-SPO-JP

PATIENT
  Age: 46 Year
  Sex: Female

DRUGS (1)
  1. EXCEGRAN [Suspect]
     Indication: EPILEPSY
     Dosage: 100 MG DAILY
     Route: 048
     Dates: start: 20100101, end: 20100715

REACTIONS (1)
  - AGRANULOCYTOSIS [None]
